FAERS Safety Report 9818665 (Version 2)
Quarter: 2014Q1

REPORT INFORMATION
  Report Type: Spontaneous
  Country: US (occurrence: US)
  Receive Date: 20140115
  Receipt Date: 20140123
  Transmission Date: 20141002
  Serious: Yes (Hospitalization)
  Sender: FDA-Public Use
  Company Number: US-BAXTER-2014BAX001444

PATIENT
  Sex: Male

DRUGS (2)
  1. DIANEAL PD2 [Suspect]
     Indication: RENAL FAILURE CHRONIC
     Route: 033
  2. NEURONTIN [Suspect]
     Indication: PAIN
     Route: 048

REACTIONS (2)
  - Mental status changes [Recovering/Resolving]
  - Hip fracture [Recovering/Resolving]
